FAERS Safety Report 6147965-8 (Version None)
Quarter: 2009Q2

REPORT INFORMATION
  Report Type: 
  Country: None (occurrence: None)
  Receive Date: 20090408
  Receipt Date: 20090408
  Transmission Date: 20091009
  Serious: Yes (Hospitalization, Other)
  Sender: FDA-Public Use
  Company Number: US-PFIZER INC-2008159824

PATIENT
  Sex: Female
  Weight: 57 kg

DRUGS (4)
  1. SOLU-MEDROL [Suspect]
     Indication: MULTIPLE SCLEROSIS
     Dosage: UNK
     Route: 042
     Dates: start: 20070301
  2. REBIF [Suspect]
     Dosage: 8.8MCG, 3 IN 1 WEEKS
     Route: 058
     Dates: start: 20060322, end: 20081002
  3. REBIF [Suspect]
     Dosage: 8.8 UG, UNK
     Dates: start: 20081205
  4. ZANTAC [Concomitant]
     Dosage: UNK

REACTIONS (11)
  - ABASIA [None]
  - ANAPHYLACTIC REACTION [None]
  - ANXIETY [None]
  - BLISTER [None]
  - CONTUSION [None]
  - DYSPNOEA [None]
  - EXTRAVASATION [None]
  - HYPOAESTHESIA [None]
  - MULTIPLE SCLEROSIS RELAPSE [None]
  - PALPITATIONS [None]
  - SWELLING [None]
